FAERS Safety Report 10580218 (Version 4)
Quarter: 2015Q2

REPORT INFORMATION
  Report Type: Spontaneous
  Country: PT (occurrence: PT)
  Receive Date: 20141112
  Receipt Date: 20150522
  Transmission Date: 20150821
  Serious: Yes (Disabling, Other)
  Sender: FDA-Public Use
  Company Number: PT-GILEAD-2014-0121971

PATIENT
  Age: 51 Year
  Sex: Female
  Weight: 50 kg

DRUGS (3)
  1. REYATAZ [Interacting]
     Active Substance: ATAZANAVIR SULFATE
     Indication: PROPHYLAXIS AGAINST HIV INFECTION
     Route: 048
     Dates: start: 20120123, end: 20120220
  2. VIREAD [Suspect]
     Active Substance: TENOFOVIR DISOPROXIL FUMARATE
     Indication: PROPHYLAXIS AGAINST HIV INFECTION
     Route: 048
     Dates: start: 20120123, end: 20120220
  3. NORVIR [Interacting]
     Active Substance: RITONAVIR
     Indication: PROPHYLAXIS AGAINST HIV INFECTION
     Route: 048
     Dates: start: 20120123, end: 20120220

REACTIONS (24)
  - Paraesthesia [Not Recovered/Not Resolved]
  - Abdominal pain [Recovered/Resolved]
  - Hyperaesthesia [Not Recovered/Not Resolved]
  - Peripheral sensory neuropathy [Not Recovered/Not Resolved]
  - Rash erythematous [Recovered/Resolved]
  - Fatigue [Recovered/Resolved]
  - Dyskinesia [Not Recovered/Not Resolved]
  - Rapid eye movements sleep abnormal [Recovering/Resolving]
  - Insomnia [Recovered/Resolved]
  - Rash [Recovered/Resolved]
  - Presyncope [Recovered/Resolved]
  - Rash macular [Recovered/Resolved]
  - Dysaesthesia [Not Recovered/Not Resolved]
  - Restless legs syndrome [Not Recovered/Not Resolved]
  - Hypotonia [Recovered/Resolved]
  - Pain in extremity [Not Recovered/Not Resolved]
  - Myalgia [Recovered/Resolved]
  - Headache [Recovered/Resolved]
  - Temperature intolerance [Not Recovered/Not Resolved]
  - Nausea [Recovered/Resolved]
  - Rash generalised [Recovered/Resolved]
  - Vomiting [Recovered/Resolved]
  - Hypoaesthesia [Not Recovered/Not Resolved]
  - Depression [Not Recovered/Not Resolved]

NARRATIVE: CASE EVENT DATE: 20120123
